FAERS Safety Report 7486118-8 (Version None)
Quarter: 2011Q2

REPORT INFORMATION
  Report Type: 
  Country: None (occurrence: None)
  Receive Date: 20110517
  Receipt Date: 20110503
  Transmission Date: 20111010
  Serious: Yes (Hospitalization)
  Sender: FDA-Public Use
  Company Number: CA-JNJFOC-20101200589

PATIENT
  Sex: Female
  Weight: 75 kg

DRUGS (3)
  1. REMICADE [Suspect]
     Route: 042
     Dates: start: 20101117
  2. REMICADE [Suspect]
     Indication: CROHN'S DISEASE
     Route: 042
     Dates: start: 20100924
  3. REMICADE [Suspect]
     Route: 042
     Dates: start: 20080819

REACTIONS (1)
  - OVARIAN CYST [None]
